FAERS Safety Report 6918118-8 (Version None)
Quarter: 2010Q3

REPORT INFORMATION
  Report Type: 
  Country: None (occurrence: None)
  Receive Date: 20100806
  Receipt Date: 20100728
  Transmission Date: 20110219
  Serious: Yes (Hospitalization, Other)
  Sender: FDA-Public Use
  Company Number: 2010US002606

PATIENT
  Age: 52 Year
  Sex: Male

DRUGS (3)
  1. PROGRAF [Suspect]
     Indication: BONE MARROW TRANSPLANT
     Dosage: 1 MG IN AM, 2 MG IN PM, ORAL
     Route: 048
     Dates: start: 20100412, end: 20100610
  2. RAPAMUNE [Concomitant]
  3. VALCYTE [Concomitant]

REACTIONS (2)
  - PERICARDIAL EFFUSION [None]
  - PERICARDITIS [None]
